FAERS Safety Report 20791148 (Version 1)
Quarter: 2022Q2

REPORT INFORMATION
  Report Type: Spontaneous
  Country: US (occurrence: None)
  Receive Date: 20220505
  Receipt Date: 20220505
  Transmission Date: 20220721
  Serious: No
  Sender: FDA-Public Use
  Company Number: None

PATIENT
  Age: 56 Year
  Sex: Female
  Weight: 85.5 kg

DRUGS (9)
  1. PAXLOVID [Suspect]
     Active Substance: NIRMATRELVIR\RITONAVIR
     Indication: COVID-19
     Dosage: FREQUENCY : TWICE A DAY;?
     Route: 048
     Dates: start: 20220429, end: 20220430
  2. ALBUTEROL [Concomitant]
     Active Substance: ALBUTEROL
  3. AZELASTINE [Concomitant]
     Active Substance: AZELASTINE
  4. TRAMADOL [Concomitant]
     Active Substance: TRAMADOL
  5. FEXOFENADINE [Concomitant]
     Active Substance: FEXOFENADINE HYDROCHLORIDE
  6. GABAPENTIN [Concomitant]
     Active Substance: GABAPENTIN
  7. MOMETASONE [Concomitant]
     Active Substance: MOMETASONE
  8. IBUPROFEN [Concomitant]
     Active Substance: IBUPROFEN
  9. CLOBETASOL [Concomitant]
     Active Substance: CLOBETASOL

REACTIONS (1)
  - Urticaria [None]

NARRATIVE: CASE EVENT DATE: 20220430
